FAERS Safety Report 6634797-7 (Version None)
Quarter: 2010Q1

REPORT INFORMATION
  Report Type: 
  Country: None (occurrence: None)
  Receive Date: 20100315
  Receipt Date: 20100303
  Transmission Date: 20100710
  Serious: Yes (Other)
  Sender: FDA-Public Use
  Company Number: PT-PFIZER INC-2010027194

PATIENT
  Age: 84 Year

DRUGS (1)
  1. ZYVOXID [Suspect]
     Indication: PERITONITIS
     Dosage: UNK
     Dates: start: 20100212, end: 20100201

REACTIONS (2)
  - PATHOGEN RESISTANCE [None]
  - STAPHYLOCOCCAL BACTERAEMIA [None]
